FAERS Safety Report 9213760 (Version 2)
Quarter: 2013Q4

REPORT INFORMATION
  Report Type: Spontaneous
  Country: GB (occurrence: GB)
  Receive Date: 20130405
  Receipt Date: 20131120
  Transmission Date: 20140711
  Serious: Yes (Other)
  Sender: FDA-Public Use
  Company Number: GB-PFIZER INC-2013102700

PATIENT
  Age: 48 Year
  Sex: Female
  Weight: 81 kg

DRUGS (12)
  1. DEPO-PROVERA [Suspect]
     Indication: CONTRACEPTION
     Dosage: 150 MG, UNK
     Route: 030
     Dates: start: 20000628, end: 2013
  2. LAXIDO [Concomitant]
     Indication: CONSTIPATION
     Dosage: TAKE ONE TWICE A DAY WHEN REQUIRED.
     Route: 048
     Dates: start: 20121030
  3. PARACETAMOL [Concomitant]
     Indication: PAIN
     Dosage: 500 MG, TAKEN ONE OR TWO FOUR TIMES A DAY WHEN REQUIRED
     Dates: start: 20121030
  4. CODEINE PHOSPHATE [Concomitant]
     Indication: PAIN
     Dosage: 30 MG, TAKEN ONE FOUR TIMES A DAY WHEN REQUIRED
     Dates: start: 20121030
  5. NEORAL [Concomitant]
     Dosage: 50 MG, 1X/DAY (TAKEN IN THE EVENING)
     Dates: start: 20120411
  6. NEORAL [Concomitant]
     Dosage: 100 MG, 1X/DAY (TAKEN IN THE MORNING)
     Dates: start: 20100118
  7. FOLIC ACID [Concomitant]
     Dosage: 5 MG, 1X/DAY
     Dates: start: 20101215
  8. CYANOCOBALAMIN [Concomitant]
     Dosage: 50 UG, 1X/DAY
     Dates: start: 20101215
  9. LISINOPRIL [Concomitant]
     Dosage: 10 MG, 1X/DAY
     Dates: start: 20091113
  10. QVAR [Concomitant]
     Dosage: 1 DF, 2X/DAY (50MCG PER ACTUATION)
     Route: 055
     Dates: start: 20090924
  11. SALBUTAMOL [Concomitant]
     Dosage: 2 DF, AS NEEDED (100 MICROGRAMS PER INHALATION)
     Route: 055
     Dates: start: 20090924
  12. CELECOXIB [Concomitant]
     Dosage: 200 MG, 2X/DAY
     Dates: start: 20070716

REACTIONS (2)
  - Pericarditis [Recovering/Resolving]
  - Pericardial effusion [Unknown]
